FAERS Safety Report 5277138-2 (Version None)
Quarter: 2007Q1

REPORT INFORMATION
  Report Type: 
  Country: None (occurrence: None)
  Receive Date: 20070322
  Receipt Date: 20070322
  Transmission Date: 20070707
  Serious: Yes (Other)
  Sender: FDA-Public Use
  Company Number: None

PATIENT
  Sex: Female

DRUGS (9)
  1. REVLIMID [Suspect]
     Indication: MYELODYSPLASTIC SYNDROME
     Dosage: 5MG DAILY PO
     Route: 048
  2. ASPIRIN [Concomitant]
  3. CYANOCOBALAMIN [Concomitant]
  4. LEVOTHROID [Concomitant]
  5. LACTULOSE [Concomitant]
  6. LOVASTATIN [Concomitant]
  7. VICODIN [Concomitant]
  8. PROCHLORPERAZINE [Concomitant]
  9. HYDROMORPHONE HCL [Concomitant]

REACTIONS (1)
  - NEUTROPENIA [None]
